FAERS Safety Report 17296894 (Version 1)
Quarter: 2020Q1

REPORT INFORMATION
  Report Type: Spontaneous
  Country: US (occurrence: US)
  Receive Date: 20200121
  Receipt Date: 20200121
  Transmission Date: 20200409
  Serious: No
  Sender: FDA-Public Use
  Company Number: US-ANIPHARMA-2019-US-005936

PATIENT
  Age: 72 Year
  Sex: Female
  Weight: 66.23 kg

DRUGS (1)
  1. HYDROCORTISONE RECTAL SUSPENSION (NON-SPECIFC) [Suspect]
     Active Substance: HYDROCORTISONE
     Indication: COLITIS
     Dosage: UNK
     Route: 054

REACTIONS (2)
  - Hyperhidrosis [Unknown]
  - Hot flush [Unknown]
